FAERS Safety Report 25375441 (Version 2)
Quarter: 2025Q3

REPORT INFORMATION
  Report Type: Report from Study
  Country: US (occurrence: US)
  Receive Date: 20250529
  Receipt Date: 20250927
  Transmission Date: 20251021
  Serious: Yes (Other)
  Sender: ABBVIE
  Company Number: US-ABBVIE-6302888

PATIENT
  Age: 58 Year
  Sex: Female

DRUGS (1)
  1. SKYRIZI [Suspect]
     Active Substance: RISANKIZUMAB-RZAA
     Indication: Psoriasis
     Route: 058
     Dates: start: 2022

REACTIONS (4)
  - Hip arthroplasty [Recovering/Resolving]
  - Nerve compression [Unknown]
  - Arthralgia [Recovering/Resolving]
  - Spinal stenosis [Unknown]

NARRATIVE: CASE EVENT DATE: 20250401
